FAERS Safety Report 4931975-X (Version None)
Quarter: 2006Q1

REPORT INFORMATION
  Report Type: 
  Country: None (occurrence: None)
  Receive Date: 20060303
  Receipt Date: 20060228
  Transmission Date: 20060701
  Serious: Yes (Disabling)
  Sender: FDA-Public Use
  Company Number: US-GLAXOSMITHKLINE-A0595514A

PATIENT
  Age: 15 Year
  Sex: Female

DRUGS (1)
  1. LAMICTAL [Suspect]
     Dosage: 50MG PER DAY
     Route: 048

REACTIONS (2)
  - PHOTOPSIA [None]
  - VISION BLURRED [None]
